FAERS Safety Report 7912153-9 (Version None)
Quarter: 2011Q4

REPORT INFORMATION
  Report Type: 
  Country: None (occurrence: None)
  Receive Date: 20111114
  Receipt Date: 20111110
  Transmission Date: 20120403
  Serious: Yes (Other)
  Sender: FDA-Public Use
  Company Number: US-PFIZER INC-2011276159

PATIENT
  Sex: Male

DRUGS (4)
  1. FISH OIL [Concomitant]
     Dosage: UNK
  2. LIPITOR [Suspect]
     Indication: BLOOD CHOLESTEROL INCREASED
     Dosage: 10 MG, UNK
     Route: 048
  3. ASPIRIN [Concomitant]
     Dosage: UNK
  4. TENORMIN [Concomitant]
     Dosage: UNK

REACTIONS (2)
  - VITAMIN D DECREASED [None]
  - ORTHOPNOEA [None]
